FAERS Safety Report 7052517 (Version 2)
Quarter: 2019Q2

REPORT INFORMATION
  Report Type: Spontaneous
  Country: SE (occurrence: SE)
  Receive Date: 20090716
  Receipt Date: 20190628
  Transmission Date: 20190711
  Serious: Yes (Other)
  Sender: FDA-Public Use
  Company Number: SE-AMGEN-UK355678

PATIENT
  Sex: Female

DRUGS (22)
  1. CALCIUM CARBONATE. [Concomitant]
     Active Substance: CALCIUM CARBONATE
     Dosage: 500 MG, UNK
     Route: 048
     Dates: start: 20090104
  2. DALTEPARIN SODIUM [Concomitant]
     Active Substance: DALTEPARIN SODIUM
     Dosage: UNK UNK, UNK
     Dates: start: 20090104
  3. VENOFER [Concomitant]
     Active Substance: IRON SUCROSE
     Dosage: UNK UNK, UNK
     Route: 042
     Dates: start: 20090107
  4. FOLACIN [Concomitant]
     Dosage: 5 MG, UNK
     Route: 048
     Dates: start: 20081015
  5. PARACETAMOL [Concomitant]
     Active Substance: ACETAMINOPHEN
     Dosage: 500 MG, UNK
     Route: 048
     Dates: start: 20090102
  6. ARANESP [Suspect]
     Active Substance: DARBEPOETIN ALFA
     Indication: PRODUCT USED FOR UNKNOWN INDICATION
     Dosage: UNK
     Route: 064
  7. SODIUM BICARBONATE. [Concomitant]
     Active Substance: SODIUM BICARBONATE
     Dosage: UNK UNK, UNK
     Dates: start: 20081112, end: 20090108
  8. CEFUROXIME. [Concomitant]
     Active Substance: CEFUROXIME
     Dosage: UNK UNK, UNK
     Route: 042
     Dates: start: 20090103, end: 20090108
  9. LEVOTHYROXINE SODIUM. [Concomitant]
     Active Substance: LEVOTHYROXINE SODIUM
     Dosage: UNK UNK, UNK
     Route: 048
     Dates: start: 20090102
  10. AMOXICILLIN. [Concomitant]
     Active Substance: AMOXICILLIN
     Dosage: 500 MG, UNK
     Route: 048
     Dates: start: 20090108, end: 20090118
  11. BETAMETHASONE SODIUM PHOSPHATE [Concomitant]
     Active Substance: BETAMETHASONE SODIUM PHOSPHATE
     Dosage: UNK UNK, UNK
     Dates: start: 20090217, end: 20090218
  12. VITAMINS, OTHER COMBINATIONS [Concomitant]
     Dosage: UNK
     Route: 048
     Dates: start: 20090104
  13. FELODIPINE. [Concomitant]
     Active Substance: FELODIPINE
     Dosage: 5 MG, UNK
     Route: 048
     Dates: start: 20090219
  14. ZITHROMAX [Concomitant]
     Active Substance: AZITHROMYCIN DIHYDRATE
     Dosage: 500 MG, UNK
     Route: 048
     Dates: start: 20090105, end: 20090108
  15. FUROSEMIDE. [Concomitant]
     Active Substance: FUROSEMIDE
     Dosage: UNK UNK, UNK
     Route: 048
     Dates: start: 20081212
  16. FOLIC ACID/CYANOCOBALAMIN PYRIDOXINE [Concomitant]
     Dosage: UNK UNK, UNK
     Route: 048
     Dates: start: 20081030
  17. ZINC SULFATE [Concomitant]
     Active Substance: ZINC SULFATE\ZINC SULFATE ANHYDROUS
     Dosage: 45 MG, UNK
     Route: 048
     Dates: start: 20090218
  18. INSULIN [Concomitant]
     Active Substance: INSULIN NOS
  19. ACETYLSALICYLIC ACID [Concomitant]
     Active Substance: ASPIRIN
     Dosage: 75 MG, UNK
     Route: 048
     Dates: start: 20081007
  20. CLINDAMYCIN. [Concomitant]
     Active Substance: CLINDAMYCIN
     Dosage: 300 MG, UNK
     Route: 048
     Dates: start: 20090131
  21. GRANISETRON HCL [Concomitant]
     Dosage: 1 MG, UNK
     Dates: start: 20090210
  22. LABETALOL HYDROCHLORIDE. [Concomitant]
     Active Substance: LABETALOL HYDROCHLORIDE
     Dosage: 100 MG, UNK
     Route: 048
     Dates: start: 20081030

REACTIONS (1)
  - Premature baby [Unknown]
